FAERS Safety Report 10452671 (Version 1)
Quarter: 2014Q3

REPORT INFORMATION
  Report Type: Spontaneous
  Country: US (occurrence: None)
  Receive Date: 20140912
  Receipt Date: 20140912
  Transmission Date: 20150326
  Serious: No
  Sender: FDA-Public Use
  Company Number: None

PATIENT
  Age: 10 Year
  Sex: Male
  Weight: 39.5 kg

DRUGS (3)
  1. VINCRISTINE SULFATE. [Suspect]
     Active Substance: VINCRISTINE SULFATE
  2. CYTARABINE. [Suspect]
     Active Substance: CYTARABINE
  3. DEXAMETHASONE. [Suspect]
     Active Substance: DEXAMETHASONE

REACTIONS (6)
  - Hypertension [None]
  - Unresponsive to stimuli [None]
  - Headache [None]
  - Vision blurred [None]
  - Gaze palsy [None]
  - Photophobia [None]

NARRATIVE: CASE EVENT DATE: 20140724
